FAERS Safety Report 11502441 (Version 5)
Quarter: 2015Q4

REPORT INFORMATION
  Report Type: Spontaneous
  Country: US (occurrence: US)
  Receive Date: 20150914
  Receipt Date: 20151204
  Transmission Date: 20160304
  Serious: Yes (Death, Hospitalization, Other)
  Sender: FDA-Public Use
  Company Number: US-ASTELLAS-2015US020539

PATIENT
  Age: 77 Year
  Sex: Male

DRUGS (1)
  1. XTANDI [Suspect]
     Active Substance: ENZALUTAMIDE
     Indication: PROSTATE CANCER
     Route: 065

REACTIONS (14)
  - Fatigue [Unknown]
  - Diarrhoea [Unknown]
  - Dizziness [Unknown]
  - Nausea [Unknown]
  - Terminal state [Unknown]
  - Underdose [Unknown]
  - Balance disorder [Unknown]
  - Drug dose omission [Unknown]
  - Weight decreased [Unknown]
  - Abdominal discomfort [Unknown]
  - Malignant neoplasm progression [Fatal]
  - Hospitalisation [Unknown]
  - Vomiting [Unknown]
  - Decreased appetite [Unknown]

NARRATIVE: CASE EVENT DATE: 20150601
